FAERS Safety Report 20513739 (Version 2)
Quarter: 2023Q1

REPORT INFORMATION
  Report Type: Spontaneous
  Country: US (occurrence: US)
  Receive Date: 20220224
  Receipt Date: 20230307
  Transmission Date: 20230417
  Serious: No
  Sender: FDA-Public Use
  Company Number: US-AMNEAL PHARMACEUTICALS-2021-AMRX-02342

PATIENT
  Sex: Female

DRUGS (3)
  1. RYTARY [Suspect]
     Active Substance: CARBIDOPA\LEVODOPA
     Indication: Parkinson^s disease
     Dosage: 36.25-145 MG 3 CAPSULES 3 TIMES A DAY
     Route: 048
     Dates: start: 20220920
  2. RYTARY [Suspect]
     Active Substance: CARBIDOPA\LEVODOPA
     Dosage: 36.25/145 MG 3 CAPSULES, 3 /DAY
     Route: 048
  3. RYTARY [Suspect]
     Active Substance: CARBIDOPA\LEVODOPA
     Dosage: 48.75/195  MG 3 CAPSULES, 3 /DAY
     Route: 048
     Dates: start: 20220315

REACTIONS (2)
  - Diabetes mellitus [Unknown]
  - Weight decreased [Unknown]
